FAERS Safety Report 7058059-1 (Version None)
Quarter: 2010Q4

REPORT INFORMATION
  Report Type: 
  Country: None (occurrence: None)
  Receive Date: 20101021
  Receipt Date: 20101021
  Transmission Date: 20110411
  Serious: Yes (Life-Threatening, Hospitalization, Other)
  Sender: FDA-Public Use
  Company Number: None

PATIENT
  Age: 62 Year
  Sex: Male

DRUGS (1)
  1. OCTAGAM [Suspect]

REACTIONS (2)
  - CEREBRAL ARTERY EMBOLISM [None]
  - PRODUCT QUALITY ISSUE [None]
